FAERS Safety Report 9781632 (Version 4)
Quarter: 2014Q2

REPORT INFORMATION
  Report Type: Spontaneous
  Country: US (occurrence: US)
  Receive Date: 20131224
  Receipt Date: 20140515
  Transmission Date: 20141212
  Serious: Yes (Other)
  Sender: FDA-Public Use
  Company Number: US-AMGEN-USASP2013077718

PATIENT
  Age: 75 Year
  Sex: Female
  Weight: 49.89 kg

DRUGS (4)
  1. PROLIA [Suspect]
     Indication: OSTEOPOROSIS POSTMENOPAUSAL
     Dosage: 60 MG, Q6MO
     Route: 058
     Dates: start: 20130924
  2. LISINOPRIL [Concomitant]
     Indication: HYPERTENSION
     Dosage: 20 MG, QD
     Route: 048
     Dates: start: 200909
  3. CITALOPRAM [Concomitant]
     Indication: DEPRESSION
     Dosage: 10 MG, QD
     Route: 048
     Dates: start: 20100926
  4. CALCIUM [Concomitant]
     Indication: OSTEOPOROSIS
     Dosage: 500 MG, TID
     Route: 048
     Dates: start: 200909

REACTIONS (15)
  - Rash erythematous [Unknown]
  - Secretion discharge [Unknown]
  - Skin infection [Not Recovered/Not Resolved]
  - Cellulitis [Unknown]
  - Skin discomfort [Unknown]
  - Scab [Unknown]
  - Feeling hot [Unknown]
  - Facial pain [Unknown]
  - Rosacea [Unknown]
  - Skin warm [Unknown]
  - Skin burning sensation [Unknown]
  - Rash [Unknown]
  - Eczema [Unknown]
  - Erythema [Unknown]
  - Dermatitis [Unknown]
